FAERS Safety Report 14674467 (Version 1)
Quarter: 2018Q1

REPORT INFORMATION
  Report Type: Spontaneous
  Country: CA (occurrence: CA)
  Receive Date: 20180323
  Receipt Date: 20180323
  Transmission Date: 20180509
  Serious: Yes (Other)
  Sender: FDA-Public Use
  Company Number: CA-BAYER-2018-051775

PATIENT
  Age: 42 Year
  Sex: Female
  Weight: 87 kg

DRUGS (2)
  1. MIRENA [Suspect]
     Active Substance: LEVONORGESTREL
     Indication: CONTRACEPTION
     Dosage: 20 MCG/24HR, CONT
     Route: 015
  2. MIRENA [Suspect]
     Active Substance: LEVONORGESTREL
     Indication: CONTRACEPTION

REACTIONS (29)
  - Abdominal discomfort [Unknown]
  - Abdominal pain [Unknown]
  - Amnesia [Unknown]
  - Night sweats [Unknown]
  - Psychotic disorder [Unknown]
  - Bradycardia [Unknown]
  - Epidural blood patch [Unknown]
  - Ovarian cyst [Unknown]
  - Palpitations [Unknown]
  - Tachycardia [Unknown]
  - Headache [Unknown]
  - Malaise [Unknown]
  - Paraesthesia [Unknown]
  - Presyncope [Unknown]
  - Dyspnoea [Unknown]
  - Lumbar puncture [Unknown]
  - Vertigo [Unknown]
  - Back pain [Unknown]
  - Exercise tolerance decreased [Unknown]
  - Fatigue [Unknown]
  - Influenza [Unknown]
  - Musculoskeletal stiffness [Unknown]
  - Vaginal infection [Unknown]
  - Dyschromatopsia [Unknown]
  - Feeling drunk [Unknown]
  - Immune system disorder [Unknown]
  - Depression [Unknown]
  - Vision blurred [Unknown]
  - Visual field defect [Unknown]
